FAERS Safety Report 8866355 (Version 4)
Quarter: 2013Q2

REPORT INFORMATION
  Report Type: Report from Study
  Country: BR (occurrence: BR)
  Receive Date: 20121025
  Receipt Date: 20130621
  Transmission Date: 20140414
  Serious: Yes (Hospitalization)
  Sender: FDA-Public Use
  Company Number: BR-ABBOTT-12P-020-0998160-00

PATIENT
  Age: 57 Year
  Sex: Female
  Weight: 82 kg

DRUGS (13)
  1. HUMIRA [Suspect]
     Indication: RHEUMATOID ARTHRITIS
     Route: 058
     Dates: start: 201210, end: 20130607
  2. OXYCONTIN [Concomitant]
     Indication: PAIN
     Dosage: 2 TABLETS DAILY
     Route: 048
     Dates: start: 201010
  3. TYLEX [Concomitant]
     Indication: PAIN
     Dosage: 3 TABLETS DAILY
     Route: 048
     Dates: start: 201010
  4. PROPAN [Concomitant]
     Indication: PAIN
     Dosage: 2 TABLETS DAILY
     Dates: start: 201010
  5. MAREVAN [Concomitant]
     Indication: JUVENILE IDIOPATHIC ARTHRITIS
     Dates: start: 201010
  6. PREDNISONE [Concomitant]
     Indication: JUVENILE IDIOPATHIC ARTHRITIS
     Route: 048
     Dates: start: 20101016
  7. METHOTREXATE [Concomitant]
     Indication: JUVENILE IDIOPATHIC ARTHRITIS
     Route: 048
     Dates: start: 201010
  8. DIOSMIN [Concomitant]
     Indication: CARDIOVASCULAR DISORDER
     Dosage: 2 TABLETS DAILY
     Route: 048
  9. AMITRIPTYLINE HYDROCHLORIDE [Concomitant]
     Indication: PRODUCT USED FOR UNKNOWN INDICATION
     Route: 048
     Dates: start: 201010
  10. FOLIN [Concomitant]
     Indication: ANAEMIA
     Route: 048
     Dates: start: 201010
  11. SIMVASTATIN [Concomitant]
     Indication: BLOOD CHOLESTEROL
     Route: 048
     Dates: start: 201010
  12. CENTRO CALCIO [Concomitant]
     Indication: BONE DISORDER
     Dosage: 4 TABLETS DAILY
     Route: 048
     Dates: start: 201010
  13. PROEN [Concomitant]
     Indication: CARDIOVASCULAR DISORDER
     Route: 048
     Dates: start: 201305

REACTIONS (7)
  - Still^s disease adult onset [Recovered/Resolved]
  - Pyrexia [Recovered/Resolved]
  - Rash [Recovered/Resolved]
  - Hepatosplenomegaly [Recovered/Resolved]
  - Leukocytosis [Recovered/Resolved]
  - Serum ferritin increased [Recovered/Resolved]
  - Pyrexia [Not Recovered/Not Resolved]
